FAERS Safety Report 19509923 (Version 1)
Quarter: 2021Q3

REPORT INFORMATION
  Report Type: Report from Study
  Country: GB (occurrence: GB)
  Receive Date: 20210709
  Receipt Date: 20210709
  Transmission Date: 20211014
  Serious: Yes (Other)
  Sender: FDA-Public Use
  Company Number: NVSC2021GB148006

PATIENT
  Sex: Female

DRUGS (2)
  1. COSENTYX [Suspect]
     Active Substance: SECUKINUMAB
     Indication: PSORIATIC ARTHROPATHY
     Dosage: 150 MG, QMO (MONTHLY)
     Route: 058
     Dates: start: 20200825
  2. COSENTYX [Suspect]
     Active Substance: SECUKINUMAB
     Dosage: 150 MG, QMO (MONTHLY)
     Route: 058
     Dates: start: 2020

REACTIONS (3)
  - Rash [Unknown]
  - Arthritis [Unknown]
  - Seronegative arthritis [Unknown]
